FAERS Safety Report 8113088 (Version 2)
Quarter: 2022Q2

REPORT INFORMATION
  Report Type: Spontaneous
  Country: HK (occurrence: HK)
  Receive Date: 20110830
  Receipt Date: 20220415
  Transmission Date: 20220721
  Serious: Yes (Death, Hospitalization, Other)
  Sender: FDA-Public Use
  Company Number: HK-SANOFI-AVENTIS-2011SA052346

PATIENT
  Age: 37 Year
  Sex: Female

DRUGS (2)
  1. CHLOROQUINE [Suspect]
     Active Substance: CHLOROQUINE
     Indication: Suicide attempt
     Dosage: 6.25 G,1X (25 TABLETS CQ (250 MG/TABLET))
     Route: 048
     Dates: start: 200908, end: 200908
  2. HYDROXYCHLOROQUINE [Suspect]
     Active Substance: HYDROXYCHLOROQUINE
     Indication: Suicide attempt
     Dosage: 6 G,1X (30 TABLETS OF HCQ (200 MG/TABLET))
     Route: 048
     Dates: start: 200908, end: 200908

REACTIONS (9)
  - Hypokalaemia [Fatal]
  - Intentional overdose [Fatal]
  - Torsade de pointes [Fatal]
  - Ventricular fibrillation [Fatal]
  - Sinus tachycardia [Fatal]
  - Cardiac arrest [Fatal]
  - Hypotension [Fatal]
  - Electrocardiogram QRS complex prolonged [Fatal]
  - Ventricular arrhythmia [Fatal]

NARRATIVE: CASE EVENT DATE: 20090801
